FAERS Safety Report 6021168-X (Version None)
Quarter: 2008Q4

REPORT INFORMATION
  Report Type: 
  Country: None (occurrence: None)
  Receive Date: 20081229
  Receipt Date: 20081219
  Transmission Date: 20090506
  Serious: Yes (Other)
  Sender: FDA-Public Use
  Company Number: US-PFIZER INC-2008157895

PATIENT
  Sex: Male

DRUGS (3)
  1. LIPITOR [Suspect]
  2. DILANTIN-125 [Suspect]
  3. ARICEPT [Suspect]

REACTIONS (2)
  - DEMENTIA ALZHEIMER'S TYPE [None]
  - NEOPLASM MALIGNANT [None]
